FAERS Safety Report 15143524 (Version 1)
Quarter: 2018Q3

REPORT INFORMATION
  Report Type: Spontaneous
  Country: US (occurrence: US)
  Receive Date: 20180618
  Receipt Date: 20180618
  Transmission Date: 20181010
  Serious: No
  Sender: FDA-Public Use
  Company Number: None

PATIENT
  Age: 40 Year
  Sex: Male

DRUGS (1)
  1. MAVYRET [Suspect]
     Active Substance: GLECAPREVIR\PIBRENTASVIR
     Indication: HEPATITIS C
     Dosage: ?          OTHER FREQUENCY:ONCE DAILY;?
     Route: 048
     Dates: start: 20180321

REACTIONS (2)
  - Headache [None]
  - Myalgia [None]

NARRATIVE: CASE EVENT DATE: 20180402
